FAERS Safety Report 19720482 (Version 1)
Quarter: 2021Q3

REPORT INFORMATION
  Report Type: Spontaneous
  Country: DE (occurrence: DE)
  Receive Date: 20210818
  Receipt Date: 20210818
  Transmission Date: 20211014
  Serious: Yes (Other)
  Sender: FDA-Public Use
  Company Number: DE-PFIZER INC-202100995533

PATIENT
  Age: 80 Year
  Sex: Female
  Weight: 51 kg

DRUGS (7)
  1. AMLODIPINE BESILATE [Suspect]
     Active Substance: AMLODIPINE BESYLATE
     Dosage: 1.25 MG, 1X/DAY
     Dates: start: 20210705, end: 20210709
  2. AMIODARON HOLSTEN [Suspect]
     Active Substance: AMIODARONE HYDROCHLORIDE
     Indication: ATRIAL FIBRILLATION
     Dosage: 200 MG, 3X/DAY
     Dates: start: 20210705, end: 20210709
  3. VALSARTAN. [Interacting]
     Active Substance: VALSARTAN
     Dosage: 40 MG, ALTERNATE DAY, 1?0?1
     Route: 048
     Dates: start: 20210705
  4. METOPROLOL SUCCINATE. [Concomitant]
     Active Substance: METOPROLOL SUCCINATE
     Dosage: 47.5 MG, ALTERNATE DAY, 1 ? 0 ? 1
     Dates: end: 20210704
  5. METOPROLOL SUCCINATE. [Concomitant]
     Active Substance: METOPROLOL SUCCINATE
     Dosage: 47.5 MG, 2 ? 0 ? 2
     Dates: start: 20210705, end: 20210709
  6. XARELTO [Interacting]
     Active Substance: RIVAROXABAN
     Dosage: 20 MG, 1X/DAY, 0 ? 1 ? 0
     Dates: start: 20210705
  7. METOPROLOL SUCCINATE. [Concomitant]
     Active Substance: METOPROLOL SUCCINATE
     Dosage: 47.5 MG, ALTERNATE DAY, 1 ? 0 ? 1
     Dates: start: 20210710

REACTIONS (5)
  - Hypertension [Not Recovered/Not Resolved]
  - Drug interaction [Not Recovered/Not Resolved]
  - Bradycardia [Not Recovered/Not Resolved]
  - Gastrointestinal disorder [Not Recovered/Not Resolved]
  - Nausea [Not Recovered/Not Resolved]

NARRATIVE: CASE EVENT DATE: 20210705
